FAERS Safety Report 20774824 (Version 2)
Quarter: 2022Q2

REPORT INFORMATION
  Report Type: Spontaneous
  Country: JP (occurrence: JP)
  Receive Date: 20220502
  Receipt Date: 20220511
  Transmission Date: 20220721
  Serious: Yes (Hospitalization, Other)
  Sender: FDA-Public Use
  Company Number: JP-TEVA-2022-JP-2033062

PATIENT
  Age: 79 Year
  Sex: Female

DRUGS (1)
  1. PREDNISOLONE [Suspect]
     Active Substance: PREDNISOLONE
     Indication: Immune thrombocytopenia
     Route: 048

REACTIONS (4)
  - Hypertension [Unknown]
  - Dyslipidaemia [Unknown]
  - Diabetes mellitus [Unknown]
  - Drug ineffective [Unknown]
